FAERS Safety Report 9837294 (Version 2)
Quarter: 2014Q1

REPORT INFORMATION
  Report Type: Spontaneous
  Country: US (occurrence: US)
  Receive Date: 20140123
  Receipt Date: 20140124
  Transmission Date: 20141002
  Serious: No
  Sender: FDA-Public Use
  Company Number: US-PFIZER INC-2014016721

PATIENT
  Age: 64 Year
  Sex: Female
  Weight: 63.04 kg

DRUGS (19)
  1. LYRICA [Suspect]
     Dosage: 100 MG, 1X/DAY (AT BED TIME)
     Route: 048
  2. PREMARIN [Suspect]
     Dosage: 1 G, DAILY
     Route: 067
  3. XANAX [Suspect]
     Dosage: 0.5 MG, UNK
     Route: 048
  4. TYLENOL [Concomitant]
     Dosage: 1 DF, ONCE DAILY AS NEEDED
     Route: 048
  5. AQUAPHOR [Concomitant]
     Dosage: UNK, 2X/ DAY APPLY TO BUTTOCKS
     Route: 061
  6. BELLADONNA EXTRACT/OPIUM [Concomitant]
     Indication: BLADDER PAIN
     Dosage: BELLADONNA 16.2 MG/OPIUM 30 MG, ONCE TO TWO TIMES A DAY AS NEEDED
     Route: 054
  7. BUPROPION [Concomitant]
     Dosage: 150 MG, 1X/DAY EVER MORNING
     Route: 048
  8. CIPROFLOXACIN [Concomitant]
     Dosage: 500 MG, 2X/DAY
     Route: 048
  9. DICYCLOMINE [Concomitant]
     Dosage: 20 MG (10 MG 2 CAPS), 2X/DAY
     Route: 048
  10. COLACE [Concomitant]
     Dosage: 1DF, ONCE DAILY AS NEEDED
     Route: 048
  11. FLONASE [Concomitant]
     Dosage: 50 MCG/ACT PLACE 2 SPRAYS, DAILY
     Route: 045
  12. FOLIC ACID [Concomitant]
     Dosage: 1 MG, DAILY
     Route: 048
  13. LEVOTHYROXINE [Concomitant]
     Dosage: 50 UG (50 MCG TABS, 1 TAB), DAILY
     Route: 048
  14. PAROXETINE [Concomitant]
     Dosage: 20 MG (10 MG 2 TABS), AT BEDTIME
     Route: 048
  15. TROSPIUM [Concomitant]
     Dosage: 20 MG (1 TAB), 2X/DAY
     Route: 048
  16. VITAMIN D2 [Concomitant]
     Dosage: 50000 IU (1 CAP), WEEKLY
     Route: 048
  17. PREGABALIN [Concomitant]
     Dosage: 75 MG (1 CAP), AT BEDTIME
     Route: 048
  18. VITAMIN B-12 [Concomitant]
     Dosage: 1000 UG, UNK
  19. LORAZEPAM [Concomitant]
     Indication: ANXIETY
     Dosage: 0.5 MG EVERY 6 HOURS AS NEEDED
     Route: 048

REACTIONS (13)
  - Abdominal pain [Unknown]
  - Anxiety [Unknown]
  - Upper respiratory tract infection [Unknown]
  - Nasal congestion [Unknown]
  - Oropharyngeal pain [Unknown]
  - Gastric disorder [Unknown]
  - Pain [Unknown]
  - Lip exfoliation [Unknown]
  - Malaise [Unknown]
  - Depression [Unknown]
  - Palpitations [Unknown]
  - Crying [Unknown]
  - Hypervigilance [Unknown]
